FAERS Safety Report 21789846 (Version 1)
Quarter: 2022Q4

REPORT INFORMATION
  Report Type: Spontaneous
  Country: JP (occurrence: JP)
  Receive Date: 20221228
  Receipt Date: 20221228
  Transmission Date: 20230113
  Serious: Yes (Other)
  Sender: FDA-Public Use
  Company Number: JP-CHUGAI-2022051224

PATIENT

DRUGS (1)
  1. VABYSMO [Suspect]
     Active Substance: FARICIMAB-SVOA
     Indication: Diabetic retinal oedema
     Dosage: 0.05 MILLILITER, ONCE/MONTH
     Route: 031
     Dates: start: 20221003, end: 20221003

REACTIONS (2)
  - Iritis [Unknown]
  - Vitreous opacities [Recovered/Resolved]
